FAERS Safety Report 8089404-6 (Version None)
Quarter: 2012Q1

REPORT INFORMATION
  Report Type: 
  Country: None (occurrence: None)
  Receive Date: 20120128
  Receipt Date: 20110623
  Transmission Date: 20120608
  Serious: No
  Sender: FDA-Public Use
  Company Number: US-ABBOTT-11P-163-0723778-00

PATIENT
  Age: 35 Year
  Sex: Female

DRUGS (2)
  1. LIALDA [Concomitant]
     Indication: PRODUCT USED FOR UNKNOWN INDICATION
     Route: 048
  2. HUMIRA [Suspect]
     Indication: CROHN'S DISEASE
     Dates: start: 20101201

REACTIONS (5)
  - MUCOUS STOOLS [None]
  - FREQUENT BOWEL MOVEMENTS [None]
  - ALOPECIA [None]
  - DEPRESSED MOOD [None]
  - DIARRHOEA [None]
